FAERS Safety Report 25727495 (Version 1)
Quarter: 2025Q3

REPORT INFORMATION
  Report Type: Spontaneous
  Country: US (occurrence: None)
  Receive Date: 20250825
  Receipt Date: 20250825
  Transmission Date: 20251021
  Serious: Yes (Hospitalization)
  Sender: FDA-CTU
  Company Number: None

PATIENT

DRUGS (2)
  1. HYDROMORPHONE [Suspect]
     Active Substance: HYDROMORPHONE
  2. OXYCODONE [Suspect]
     Active Substance: OXYCODONE

REACTIONS (2)
  - Respiratory arrest [None]
  - Therapy non-responder [None]

NARRATIVE: CASE EVENT DATE: 20220907
